FAERS Safety Report 5412887-4 (Version None)
Quarter: 2007Q3

REPORT INFORMATION
  Report Type: 
  Country: None (occurrence: None)
  Receive Date: 20070713
  Receipt Date: 20070423
  Transmission Date: 20080115
  Serious: No
  Sender: FDA-Public Use
  Company Number: 2007SP001467

PATIENT
  Age: 58 Year
  Sex: Female
  Weight: 63.5036 kg

DRUGS (2)
  1. LUNESTA [Suspect]
     Indication: INSOMNIA
     Dosage: 3 MG; ORAL
     Route: 048
     Dates: start: 20070401, end: 20070401
  2. ESTROGENS [Concomitant]

REACTIONS (5)
  - ANOREXIA [None]
  - ANXIETY [None]
  - POOR QUALITY SLEEP [None]
  - PRURITUS [None]
  - SOMNOLENCE [None]
